FAERS Safety Report 15291531 (Version 2)
Quarter: 2018Q3

REPORT INFORMATION
  Report Type: Spontaneous
  Country: US (occurrence: US)
  Receive Date: 20180817
  Receipt Date: 20180824
  Transmission Date: 20181010
  Serious: Yes (Hospitalization)
  Sender: FDA-Public Use
  Company Number: US-BIOGEN-2018BI00620041

PATIENT
  Age: 42 Year
  Sex: Male

DRUGS (1)
  1. TECFIDERA [Suspect]
     Active Substance: DIMETHYL FUMARATE
     Indication: MULTIPLE SCLEROSIS
     Dosage: MAINTENANCE DOSE
     Route: 048
     Dates: start: 20180411, end: 20180808

REACTIONS (11)
  - Abdominal pain [Unknown]
  - Musculoskeletal stiffness [Unknown]
  - Cardiac failure congestive [Unknown]
  - Blood urine present [Unknown]
  - Haemorrhagic pneumonia [Unknown]
  - Infection [Unknown]
  - Headache [Unknown]
  - Viral infection [Unknown]
  - Neck pain [Unknown]
  - CSF pressure increased [Unknown]
  - Pyrexia [Unknown]

NARRATIVE: CASE EVENT DATE: 20180728
